FAERS Safety Report 15618201 (Version 1)
Quarter: 2018Q4

REPORT INFORMATION
  Report Type: Spontaneous
  Country: DE (occurrence: DE)
  Receive Date: 20181114
  Receipt Date: 20181114
  Transmission Date: 20190205
  Serious: Yes (Other)
  Sender: FDA-Public Use
  Company Number: DE-009507513-1811DEU003775

PATIENT
  Age: 67 Year
  Sex: Female

DRUGS (1)
  1. PEMBROLIZUMAB. [Suspect]
     Active Substance: PEMBROLIZUMAB
     Indication: NON-SMALL CELL LUNG CANCER STAGE IV
     Dosage: UNK, CYCLICAL
     Dates: start: 201712

REACTIONS (3)
  - Deep vein thrombosis [Unknown]
  - Rheumatoid arthritis [Unknown]
  - Cerebral microangiopathy [Unknown]

NARRATIVE: CASE EVENT DATE: 201801
